FAERS Safety Report 19962177 (Version 2)
Quarter: 2021Q4

REPORT INFORMATION
  Report Type: Spontaneous
  Country: US (occurrence: US)
  Receive Date: 20211018
  Receipt Date: 20211018
  Transmission Date: 20220303
  Serious: Yes (Other)
  Sender: FDA-Public Use
  Company Number: US-CELGENE-USA-20211001374

PATIENT
  Age: 71 Year
  Sex: Female

DRUGS (2)
  1. ZEPOSIA [Suspect]
     Active Substance: OZANIMOD HYDROCHLORIDE
     Indication: Colitis ulcerative
     Dosage: .92 MILLIGRAM
     Route: 048
     Dates: start: 20210914
  2. PREDNISONE [Concomitant]
     Active Substance: PREDNISONE
     Indication: Product used for unknown indication
     Route: 065

REACTIONS (11)
  - Haemorrhage [Not Recovered/Not Resolved]
  - Dry mouth [Recovering/Resolving]
  - Fatigue [Not Recovered/Not Resolved]
  - Dyspepsia [Not Recovered/Not Resolved]
  - Ear pain [Unknown]
  - Pain in jaw [Unknown]
  - Chest pain [Unknown]
  - Insomnia [Unknown]
  - Headache [Not Recovered/Not Resolved]
  - Blood pressure increased [Recovering/Resolving]
  - Drug ineffective [Not Recovered/Not Resolved]

NARRATIVE: CASE EVENT DATE: 20210101
